FAERS Safety Report 11513228 (Version 1)
Quarter: 2015Q3

REPORT INFORMATION
  Report Type: Spontaneous
  Country: US (occurrence: None)
  Receive Date: 20150915
  Receipt Date: 20150915
  Transmission Date: 20151125
  Serious: Yes (Other)
  Sender: FDA-Public Use
  Company Number: None

PATIENT
  Age: 66 Year
  Sex: Female
  Weight: 61.69 kg

DRUGS (6)
  1. FENUGREEK [Concomitant]
     Active Substance: FENUGREEK SEED
  2. TRAZODONE [Suspect]
     Active Substance: TRAZODONE HYDROCHLORIDE
     Indication: INSOMNIA
     Dosage: 1-2
     Route: 048
     Dates: start: 20150904, end: 20150910
  3. KLONOPIN [Concomitant]
     Active Substance: CLONAZEPAM
  4. COQ10 [Concomitant]
     Active Substance: UBIDECARENONE
  5. CALCIUM [Concomitant]
     Active Substance: CALCIUM
  6. RED YEAST RICE [Concomitant]
     Active Substance: DIETARY SUPPLEMENT

REACTIONS (4)
  - Dizziness [None]
  - Balance disorder [None]
  - Panic attack [None]
  - Visual impairment [None]

NARRATIVE: CASE EVENT DATE: 20150910
